FAERS Safety Report 12167672 (Version 8)
Quarter: 2016Q4

REPORT INFORMATION
  Report Type: Spontaneous
  Country: EC (occurrence: EC)
  Receive Date: 20160310
  Receipt Date: 20161028
  Transmission Date: 20170207
  Serious: Yes (Disabling, Other)
  Sender: FDA-Public Use
  Company Number: PHHY2016EC032575

PATIENT
  Age: 60 Year
  Sex: Female

DRUGS (6)
  1. ACLASTA [Suspect]
     Active Substance: ZOLEDRONIC ACID
     Dosage: 5 MG, Q12MO
     Route: 042
     Dates: start: 2013
  2. ACLASTA [Suspect]
     Active Substance: ZOLEDRONIC ACID
     Dosage: 5 MG, Q12MO
     Route: 042
     Dates: start: 2014
  3. ACLASTA [Suspect]
     Active Substance: ZOLEDRONIC ACID
     Indication: OSTEOPOROSIS
     Dosage: 5 MG, Q12MO
     Route: 042
     Dates: start: 2009
  4. ACLASTA [Suspect]
     Active Substance: ZOLEDRONIC ACID
     Dosage: 5 MG, Q12MO
     Route: 042
     Dates: start: 201511, end: 201511
  5. ACLASTA [Suspect]
     Active Substance: ZOLEDRONIC ACID
     Dosage: 5 MG, Q12MO
     Route: 042
     Dates: start: 2012
  6. ENSURE [Suspect]
     Active Substance: AMINO ACIDS\DEXTROSE\ELECTROLYTES NOS\SOYBEAN OIL\VITAMINS
     Indication: IMMUNODEFICIENCY
     Route: 065

REACTIONS (31)
  - Herpes zoster [Not Recovered/Not Resolved]
  - Mastication disorder [Unknown]
  - Exposed bone in jaw [Unknown]
  - Decreased appetite [Unknown]
  - Tooth loss [Not Recovered/Not Resolved]
  - Feeding disorder [Not Recovered/Not Resolved]
  - Anxiety [Not Recovered/Not Resolved]
  - Jaw disorder [Unknown]
  - Infection [Not Recovered/Not Resolved]
  - Underweight [Not Recovered/Not Resolved]
  - General physical health deterioration [Unknown]
  - Musculoskeletal discomfort [Not Recovered/Not Resolved]
  - Malaise [Unknown]
  - Pain in jaw [Not Recovered/Not Resolved]
  - Impaired healing [Unknown]
  - Fatigue [Unknown]
  - Gastrointestinal disorder [Unknown]
  - Colitis [Not Recovered/Not Resolved]
  - Tension [Not Recovered/Not Resolved]
  - Dysgeusia [Unknown]
  - Eyelid thickening [Not Recovered/Not Resolved]
  - Ear disorder [Unknown]
  - Pain [Unknown]
  - Discomfort [Not Recovered/Not Resolved]
  - Stress [Not Recovered/Not Resolved]
  - Osteonecrosis of jaw [Not Recovered/Not Resolved]
  - Immunodeficiency [Not Recovered/Not Resolved]
  - Anaemia [Not Recovered/Not Resolved]
  - Alveolar osteitis [Not Recovered/Not Resolved]
  - Drug hypersensitivity [Unknown]
  - Asthenia [Not Recovered/Not Resolved]

NARRATIVE: CASE EVENT DATE: 201512
